FAERS Safety Report 11729015 (Version 1)
Quarter: 2015Q4

REPORT INFORMATION
  Report Type: Spontaneous
  Country: GB (occurrence: GB)
  Receive Date: 20151112
  Receipt Date: 20151112
  Transmission Date: 20160304
  Serious: Yes (Other)
  Sender: FDA-Public Use
  Company Number: GB-JNJFOC-20151105052

PATIENT
  Sex: Male

DRUGS (1)
  1. EDURANT [Suspect]
     Active Substance: RILPIVIRINE HYDROCHLORIDE
     Indication: HIV INFECTION
     Route: 048

REACTIONS (10)
  - Chronic obstructive pulmonary disease [Unknown]
  - Osteoporosis [Unknown]
  - Chest pain [Unknown]
  - Incontinence [Unknown]
  - Arthritis [Unknown]
  - Muscle spasms [Unknown]
  - Migraine [Unknown]
  - Emphysema [Unknown]
  - Neuropathy peripheral [Unknown]
  - Anxiety [Unknown]
